FAERS Safety Report 7013739-9 (Version None)
Quarter: 2010Q3

REPORT INFORMATION
  Report Type: 
  Country: None (occurrence: None)
  Receive Date: 20100924
  Receipt Date: 20100916
  Transmission Date: 20110219
  Serious: Yes (Other)
  Sender: FDA-Public Use
  Company Number: US-PFIZER INC-2007007227

PATIENT
  Sex: Male
  Weight: 142.86 kg

DRUGS (36)
  1. DEPO-PROVERA [Suspect]
     Indication: OFF LABEL USE
     Dosage: 400 MG, EVERY WEEK
     Route: 030
     Dates: start: 19970501, end: 19970101
  2. DEPO-PROVERA [Suspect]
     Indication: SEXUAL ABUSE
     Dosage: 300 MG, EVERY THREE MONTHS
     Route: 030
     Dates: start: 20050701, end: 20050701
  3. DEPO-PROVERA [Suspect]
     Dosage: 400 MG, EVERY THREE MONTHS
     Route: 030
     Dates: start: 20060301, end: 20060301
  4. DEPO-PROVERA [Suspect]
     Dosage: 400 MG, EVERY EIGHT WEEKS
     Dates: start: 20100101
  5. LIPITOR [Suspect]
     Indication: BLOOD CHOLESTEROL INCREASED
     Dates: end: 20070101
  6. LITHIUM [Suspect]
     Indication: DEPRESSION
     Dates: start: 20050826, end: 20061121
  7. LITHIUM [Suspect]
     Indication: BIPOLAR DISORDER
  8. LITHIUM [Suspect]
     Indication: MOOD SWINGS
  9. METFORMIN [Concomitant]
     Indication: DIABETES MELLITUS
  10. WELLBUTRIN [Concomitant]
  11. ASPIRIN [Concomitant]
  12. GLIPIZIDE [Concomitant]
  13. LEXAPRO [Concomitant]
  14. CARTIA XT [Concomitant]
  15. ACIPHEX [Concomitant]
  16. AVANDIA [Concomitant]
  17. LAMICTAL [Concomitant]
     Dates: start: 20061121
  18. SEROQUEL [Concomitant]
     Dates: start: 20061121
  19. CLONAZEPAM [Concomitant]
  20. LISINOPRIL [Concomitant]
  21. REGLAN [Concomitant]
  22. PRAVACHOL [Concomitant]
     Indication: BLOOD CHOLESTEROL INCREASED
     Dates: start: 20070101
  23. ADVAIR DISKUS 100/50 [Concomitant]
     Indication: ASTHMA
  24. SINGULAIR ^DIECKMANN^ [Concomitant]
     Indication: ASTHMA
  25. NASONEX [Concomitant]
  26. MIRAPEX [Concomitant]
  27. PRIMIDONE [Concomitant]
  28. POLYETHYLENE GLYCOL [Concomitant]
     Dosage: UNK
  29. CELEXA [Concomitant]
     Dosage: UNK
  30. ABILIFY [Concomitant]
     Dosage: UNK
  31. VITAMIN B-12 [Concomitant]
     Dosage: UNK
  32. ALBUTEROL [Concomitant]
     Dosage: UNK
  33. PROTONIX [Concomitant]
     Dosage: UNK
  34. MULTI-VITAMINS [Concomitant]
     Dosage: UNK
  35. TRAZODONE [Concomitant]
     Dosage: UNK
  36. CARAFATE [Concomitant]
     Indication: ABDOMINAL DISCOMFORT
     Dosage: UNK

REACTIONS (24)
  - AGGRESSION [None]
  - ANION GAP INCREASED [None]
  - BACK DISORDER [None]
  - BIPOLAR DISORDER [None]
  - BLOOD CHOLESTEROL INCREASED [None]
  - BLOOD TESTOSTERONE INCREASED [None]
  - BREAST ENLARGEMENT [None]
  - CARDIOMEGALY [None]
  - DEPRESSION [None]
  - DIABETES MELLITUS [None]
  - EXCESSIVE MASTURBATION [None]
  - HEPATIC ENZYME INCREASED [None]
  - HEPATOMEGALY [None]
  - HYPERSENSITIVITY [None]
  - INCREASED APPETITE [None]
  - INTERVERTEBRAL DISC DEGENERATION [None]
  - INTERVERTEBRAL DISC PROTRUSION [None]
  - KIDNEY ENLARGEMENT [None]
  - MOOD SWINGS [None]
  - OSTEOPOROSIS [None]
  - PARKINSON'S DISEASE [None]
  - SPLENOMEGALY [None]
  - TREMOR [None]
  - WEIGHT INCREASED [None]
